FAERS Safety Report 9821638 (Version 1)
Quarter: 2014Q1

REPORT INFORMATION
  Report Type: Spontaneous
  Country: US (occurrence: US)
  Receive Date: 20140116
  Receipt Date: 20140116
  Transmission Date: 20141002
  Serious: No
  Sender: FDA-Public Use
  Company Number: US-PFIZER INC-2014012254

PATIENT
  Sex: Female

DRUGS (4)
  1. CHANTIX [Suspect]
     Dosage: UNK
  2. PLAVIX [Concomitant]
     Dosage: UNK
  3. TOPROL [Concomitant]
     Dosage: UNK
  4. CRESTOR [Concomitant]
     Dosage: UNK

REACTIONS (2)
  - Dyspnoea [Unknown]
  - Fear [Unknown]
